FAERS Safety Report 9522693 (Version 2)
Quarter: 2013Q3

REPORT INFORMATION
  Report Type: Spontaneous
  Country: US (occurrence: US)
  Receive Date: 20130913
  Receipt Date: 20130930
  Transmission Date: 20140515
  Serious: No
  Sender: FDA-Public Use
  Company Number: US-009507513-1309USA000853

PATIENT
  Age: 56 Year
  Sex: Female

DRUGS (7)
  1. FOSAMAX [Suspect]
     Indication: OSTEOPOROSIS
     Dosage: 70 MG, QW
     Route: 048
     Dates: start: 201308
  2. ADVAIR [Concomitant]
     Dosage: HFA
  3. SPIRIVA [Concomitant]
  4. PREDNISONE [Concomitant]
     Route: 048
  5. AZITHROMYCIN [Concomitant]
  6. COMBIVENT [Concomitant]
  7. ALEVE [Concomitant]

REACTIONS (1)
  - Respiration abnormal [Unknown]
